FAERS Safety Report 15203805 (Version 1)
Quarter: 2018Q3

REPORT INFORMATION
  Report Type: Spontaneous
  Country: US (occurrence: US)
  Receive Date: 20180726
  Receipt Date: 20180726
  Transmission Date: 20181010
  Serious: No
  Sender: FDA-Public Use
  Company Number: US-AMNEAL PHARMACEUTICALS-2018AMN00255

PATIENT
  Sex: Female
  Weight: 63.49 kg

DRUGS (1)
  1. BUMETANIDE. [Suspect]
     Active Substance: BUMETANIDE
     Indication: OEDEMA
     Dosage: 1 MG, 1X/DAY
     Route: 048
     Dates: start: 20180503, end: 20180505

REACTIONS (2)
  - Weight increased [Unknown]
  - Drug ineffective [None]
